FAERS Safety Report 13125257 (Version 1)
Quarter: 2017Q1

REPORT INFORMATION
  Report Type: Spontaneous
  Country: US (occurrence: US)
  Receive Date: 20170117
  Receipt Date: 20170117
  Transmission Date: 20170428
  Serious: Yes (Hospitalization)
  Sender: FDA-Public Use
  Company Number: None

PATIENT
  Age: 83 Year
  Sex: Male
  Weight: 98.3 kg

DRUGS (1)
  1. CODEINE/GUAFENESIN [Suspect]
     Active Substance: CODEINE PHOSPHATE\GUAIFENESIN
     Indication: COUGH
     Dosage: OTHER
     Route: 048
     Dates: start: 20161110, end: 20161115

REACTIONS (2)
  - Mental status changes [None]
  - Confusional state [None]

NARRATIVE: CASE EVENT DATE: 20161115
